FAERS Safety Report 8247868-9 (Version None)
Quarter: 2012Q1

REPORT INFORMATION
  Report Type: 
  Country: None (occurrence: None)
  Receive Date: 20120330
  Receipt Date: 20120322
  Transmission Date: 20120608
  Serious: Yes (Hospitalization, Other)
  Sender: FDA-Public Use
  Company Number: US-JNJFOC-20110904544

PATIENT
  Sex: Female

DRUGS (2)
  1. COZAAR [Concomitant]
     Indication: HYPERTENSION
  2. LEVAQUIN [Suspect]
     Indication: BRONCHITIS
     Route: 048
     Dates: start: 20080701

REACTIONS (5)
  - TENOSYNOVITIS [None]
  - TENDON DISORDER [None]
  - ROTATOR CUFF SYNDROME [None]
  - TENDONITIS [None]
  - TENDON RUPTURE [None]
